FAERS Safety Report 9994823 (Version 1)
Quarter: 2014Q1

REPORT INFORMATION
  Report Type: Spontaneous
  Country: US (occurrence: None)
  Receive Date: 20140307
  Receipt Date: 20140307
  Transmission Date: 20141002
  Serious: Yes (Hospitalization)
  Sender: FDA-Public Use
  Company Number: None

PATIENT
  Age: 8 Year
  Sex: Male
  Weight: 21.32 kg

DRUGS (1)
  1. DAYTRANA [Suspect]
     Indication: ATTENTION DEFICIT/HYPERACTIVITY DISORDER
     Dosage: 1 PATCH ONCE DAILY APPLIED AS MEDICATED PATCH TO SKIN
     Route: 062

REACTIONS (4)
  - Aggression [None]
  - Feeling abnormal [None]
  - Suicidal ideation [None]
  - Formication [None]
